FAERS Safety Report 7599964-7 (Version None)
Quarter: 2011Q3

REPORT INFORMATION
  Report Type: 
  Country: None (occurrence: None)
  Receive Date: 20110711
  Receipt Date: 20110706
  Transmission Date: 20111222
  Serious: Yes (Other)
  Sender: FDA-Public Use
  Company Number: US-PFIZER INC-2011152435

PATIENT
  Sex: Male

DRUGS (1)
  1. VIAGRA [Suspect]
     Indication: ERECTILE DYSFUNCTION
     Dosage: 500 MG, AS NEEDED
     Route: 048
     Dates: start: 20110601

REACTIONS (2)
  - INCORRECT DOSE ADMINISTERED [None]
  - ERECTION INCREASED [None]
